FAERS Safety Report 21233256 (Version 2)
Quarter: 2022Q4

REPORT INFORMATION
  Report Type: Report from Study
  Country: IR (occurrence: IR)
  Receive Date: 20220819
  Receipt Date: 20221011
  Transmission Date: 20230113
  Serious: Yes (Hospitalization)
  Sender: FDA-Public Use
  Company Number: IR-NOVOPROD-947342

PATIENT
  Sex: Male
  Weight: 3.32 kg

DRUGS (8)
  1. DILTIAZEM [Concomitant]
     Active Substance: DILTIAZEM
     Indication: Hypertension
     Dosage: 2.5 TABLETS DAILY
     Route: 064
  2. NOVORAPID [Suspect]
     Active Substance: INSULIN ASPART
     Dosage: 12 IU, TID (BEFORE EACH MEAL)
     Route: 064
  3. NOVORAPID [Suspect]
     Active Substance: INSULIN ASPART
     Dosage: 7 IU, TID ((BEFORE BREAKFAST, LUNCH AND DINNER )
     Route: 064
  4. NOVORAPID [Suspect]
     Active Substance: INSULIN ASPART
     Dosage: 40 IU, QD (12 IU BEFORE BREAKFAST, 16 IU BEFORE LUNCH, 12 IU BEFORE DINNER)
     Route: 064
  5. NOVORAPID [Suspect]
     Active Substance: INSULIN ASPART
     Indication: Gestational diabetes
     Dosage: 8 IU, TID
     Route: 064
  6. LEVEMIR [Suspect]
     Active Substance: INSULIN DETEMIR
     Indication: Gestational diabetes
     Dosage: 10 IU, QD (DINNER)
     Route: 064
  7. LEVEMIR [Suspect]
     Active Substance: INSULIN DETEMIR
     Dosage: 15 IU, QD (DINNER)
     Route: 064
  8. LEVEMIR [Suspect]
     Active Substance: INSULIN DETEMIR
     Dosage: 16 IU, QD (DINNER)
     Route: 064

REACTIONS (2)
  - Respiratory disorder neonatal [Recovered/Resolved]
  - Foetal exposure during pregnancy [Recovered/Resolved]

NARRATIVE: CASE EVENT DATE: 20220625
